FAERS Safety Report 24322201 (Version 2)
Quarter: 2024Q3

REPORT INFORMATION
  Report Type: Spontaneous
  Country: JP (occurrence: JP)
  Receive Date: 20240916
  Receipt Date: 20240927
  Transmission Date: 20241017
  Serious: Yes (Hospitalization, Other)
  Sender: TEVA
  Company Number: JP-TEVA-VS-3242192

PATIENT
  Age: 58 Year
  Sex: Female
  Weight: 33.8 kg

DRUGS (2)
  1. BENDAMUSTINE [Suspect]
     Active Substance: BENDAMUSTINE
     Indication: Lymphoproliferative disorder
     Route: 065
  2. RITUXIMAB [Suspect]
     Active Substance: RITUXIMAB
     Indication: Lymphoproliferative disorder
     Route: 065

REACTIONS (3)
  - Scedosporium infection [Recovered/Resolved]
  - Atelectasis [Recovered/Resolved]
  - Allergic bronchopulmonary mycosis [Recovered/Resolved]
